FAERS Safety Report 15244521 (Version 2)
Quarter: 2018Q3

REPORT INFORMATION
  Report Type: Spontaneous
  Country: US (occurrence: US)
  Receive Date: 20180806
  Receipt Date: 20180807
  Transmission Date: 20181010
  Serious: Yes (Other)
  Sender: FDA-Public Use
  Company Number: US-BAYER-2018-143097

PATIENT
  Age: 36 Year
  Sex: Male
  Weight: 68.04 kg

DRUGS (5)
  1. ISONIAZID. [Suspect]
     Active Substance: ISONIAZID
  2. PYRAZINAMIDE. [Suspect]
     Active Substance: PYRAZINAMIDE
  3. RIFAMPIN. [Suspect]
     Active Substance: RIFAMPIN
  4. PREDNISONE. [Suspect]
     Active Substance: PREDNISONE
  5. MOXIFLOXACIN ORAL [Suspect]
     Active Substance: MOXIFLOXACIN
     Indication: MENINGITIS TUBERCULOUS

REACTIONS (3)
  - Product use in unapproved indication [None]
  - Off label use [None]
  - Paradoxical drug reaction [Recovering/Resolving]
